FAERS Safety Report 5014867-X (Version None)
Quarter: 2006Q2

REPORT INFORMATION
  Report Type: 
  Country: None (occurrence: None)
  Receive Date: 20060414
  Receipt Date: 20060123
  Transmission Date: 20061013
  Serious: No
  Sender: FDA-Public Use
  Company Number: 2006SP000380

PATIENT
  Age: 61 Year
  Sex: Female
  Weight: 63.9572 kg

DRUGS (7)
  1. LUNESTA [Suspect]
     Indication: INSOMNIA
     Dosage: 3 MG;HS;ORAL
     Route: 048
     Dates: start: 20060121, end: 20060101
  2. TYLENOL (CAPLET) [Concomitant]
  3. SIMVASTATIN [Concomitant]
  4. ESTROGEN NOS [Concomitant]
  5. PROGESTERONE [Concomitant]
  6. VALIUM [Concomitant]
  7. POTASSIUM [Concomitant]

REACTIONS (2)
  - DRUG INEFFECTIVE [None]
  - INITIAL INSOMNIA [None]
